FAERS Safety Report 9736715 (Version 2)
Quarter: 2015Q3

REPORT INFORMATION
  Report Type: Spontaneous
  Country: US (occurrence: US)
  Receive Date: 20131206
  Receipt Date: 20150804
  Transmission Date: 20151125
  Serious: No
  Sender: FDA-Public Use
  Company Number: US-GILEAD-2009-0023903

PATIENT
  Age: 75 Year
  Sex: Female
  Weight: 70.31 kg

DRUGS (12)
  1. LIPITOR [Concomitant]
     Active Substance: ATORVASTATIN CALCIUM
  2. LASIX [Concomitant]
     Active Substance: FUROSEMIDE
  3. PROCARDIA [Concomitant]
     Active Substance: NIFEDIPINE
  4. LETAIRIS [Suspect]
     Active Substance: AMBRISENTAN
     Indication: PULMONARY ARTERIAL HYPERTENSION
     Route: 048
     Dates: start: 20090806
  5. LISINOPRIL. [Concomitant]
     Active Substance: LISINOPRIL
  6. PLAVIX [Concomitant]
     Active Substance: CLOPIDOGREL BISULFATE
  7. ALPRAZOLAM. [Concomitant]
     Active Substance: ALPRAZOLAM
  8. POTASSIUM CHLORIDE. [Concomitant]
     Active Substance: POTASSIUM CHLORIDE
  9. PROCRIT [Concomitant]
     Active Substance: ERYTHROPOIETIN
  10. COREG [Concomitant]
     Active Substance: CARVEDILOL
  11. HIDEWAY OXYGEN [Concomitant]
  12. CENTRUM [Concomitant]
     Active Substance: VITAMINS

REACTIONS (3)
  - Anaemia [Unknown]
  - Muscular weakness [Unknown]
  - Palpitations [Unknown]
